FAERS Safety Report 8995560 (Version 1)
Quarter: 2013Q1

REPORT INFORMATION
  Report Type: Spontaneous
  Country: US (occurrence: US)
  Receive Date: 20130103
  Receipt Date: 20130103
  Transmission Date: 20140127
  Serious: No
  Sender: FDA-Public Use
  Company Number: US-ABBOTT-12P-163-1011617-00

PATIENT
  Sex: Female
  Weight: 54.03 kg

DRUGS (4)
  1. SYNTHROID [Suspect]
     Indication: HYPOTHYROIDISM
     Dates: start: 2011
  2. FEMHRT [Concomitant]
     Indication: PRODUCT USED FOR UNKNOWN INDICATION
  3. PROPANOLOL [Concomitant]
     Indication: PRODUCT USED FOR UNKNOWN INDICATION
  4. ESTRADIOL [Concomitant]
     Indication: PRODUCT USED FOR UNKNOWN INDICATION

REACTIONS (8)
  - Alopecia [Not Recovered/Not Resolved]
  - Weight increased [Not Recovered/Not Resolved]
  - Incorrect dose administered [Unknown]
  - Amnesia [Unknown]
  - Depression [Unknown]
  - Somnolence [Unknown]
  - Alopecia [Unknown]
  - Weight increased [Unknown]
